FAERS Safety Report 6569601-9 (Version None)
Quarter: 2010Q1

REPORT INFORMATION
  Report Type: 
  Country: None (occurrence: None)
  Receive Date: 20100204
  Receipt Date: 20100128
  Transmission Date: 20100710
  Serious: Yes (Other)
  Sender: FDA-Public Use
  Company Number: AU-SANOFI-AVENTIS-2009SA000358

PATIENT
  Age: 65 Year

DRUGS (1)
  1. ARAVA [Suspect]
     Route: 048
     Dates: start: 20070215, end: 20100128

REACTIONS (1)
  - DEAFNESS [None]
